FAERS Safety Report 17401195 (Version 1)
Quarter: 2020Q1

REPORT INFORMATION
  Report Type: Spontaneous
  Country: US (occurrence: US)
  Receive Date: 20200211
  Receipt Date: 20200211
  Transmission Date: 20200409
  Serious: Yes (Death, Hospitalization, Other)
  Sender: FDA-Public Use
  Company Number: US-CIPLA LTD.-2020US00845

PATIENT

DRUGS (16)
  1. OXYCODONE [Suspect]
     Active Substance: OXYCODONE
     Dosage: UNK
  2. DEXTROMETHORPHAN [Suspect]
     Active Substance: DEXTROMETHORPHAN
     Dosage: UNK
     Route: 048
  3. DEXTROMETHORPHAN [Suspect]
     Active Substance: DEXTROMETHORPHAN
     Dosage: UNK
  4. HEROIN [Suspect]
     Active Substance: DIAMORPHINE
     Dosage: UNK
  5. DILTIAZEM. [Suspect]
     Active Substance: DILTIAZEM
     Dosage: UNK
     Route: 048
  6. CITALOPRAM [Suspect]
     Active Substance: CITALOPRAM HYDROBROMIDE
     Dosage: UNK
     Route: 048
  7. CODEINE [Suspect]
     Active Substance: CODEINE
     Dosage: UNK
     Route: 048
  8. OXYCODONE [Suspect]
     Active Substance: OXYCODONE
     Dosage: UNK
     Route: 048
  9. DILTIAZEM. [Suspect]
     Active Substance: DILTIAZEM
     Dosage: UNK
  10. CYCLOBENZAPRINE. [Suspect]
     Active Substance: CYCLOBENZAPRINE
     Dosage: UNK
     Route: 048
  11. HEROIN [Suspect]
     Active Substance: DIAMORPHINE
     Dosage: UNK
     Route: 048
  12. HYDROCODONE [Suspect]
     Active Substance: HYDROCODONE
     Dosage: UNK
     Route: 048
  13. HYDROCODONE [Suspect]
     Active Substance: HYDROCODONE
     Dosage: UNK
  14. CODEINE [Suspect]
     Active Substance: CODEINE
     Dosage: UNK
  15. CITALOPRAM [Suspect]
     Active Substance: CITALOPRAM HYDROBROMIDE
     Dosage: UNK
  16. CYCLOBENZAPRINE. [Suspect]
     Active Substance: CYCLOBENZAPRINE
     Dosage: UNK

REACTIONS (2)
  - Toxicity to various agents [Fatal]
  - Drug abuse [Fatal]
